FAERS Safety Report 4881178-2 (Version None)
Quarter: 2006Q1

REPORT INFORMATION
  Report Type: 
  Country: None (occurrence: None)
  Receive Date: 20060111
  Receipt Date: 20060111
  Transmission Date: 20060701
  Serious: Yes (Hospitalization, Disabling)
  Sender: FDA-Public Use
  Company Number: None

PATIENT
  Age: 73 Year
  Sex: Male
  Weight: 117 kg

DRUGS (2)
  1. WARFARIN    7.5MG [Suspect]
     Indication: DEEP VEIN THROMBOSIS
     Dosage: 7.5MG  QD  PO
     Route: 048
     Dates: start: 20040514, end: 20041208
  2. DICLOFENAC      50MG [Suspect]
     Indication: ARTHRALGIA
     Dosage: 50MG  TID  PO
     Route: 048
     Dates: start: 20040514, end: 20041208

REACTIONS (3)
  - ANAEMIA [None]
  - GASTROINTESTINAL HAEMORRHAGE [None]
  - INTERNATIONAL NORMALISED RATIO INCREASED [None]
